FAERS Safety Report 5441620-5 (Version None)
Quarter: 2007Q3

REPORT INFORMATION
  Report Type: 
  Country: None (occurrence: None)
  Receive Date: 20070829
  Receipt Date: 20070816
  Transmission Date: 20080115
  Serious: Yes (Death, Life-Threatening)
  Sender: FDA-Public Use
  Company Number: 2006P1000294

PATIENT
  Age: 81 Year
  Sex: Female
  Weight: 67 kg

DRUGS (9)
  1. RETEPLASE (RETEPLASE) [Suspect]
     Indication: ACUTE MYOCARDIAL INFARCTION
     Dosage: 5 IU; X1;  IV
     Dates: start: 20060417, end: 20060417
  2. ABCIXIMAB (ABCIXIMAB) [Suspect]
     Indication: ACUTE MYOCARDIAL INFARCTION
     Dosage: 8.4 MG; X1; IV, 35.7 MG; X1; IV
     Route: 042
     Dates: start: 20060417, end: 20060417
  3. ABCIXIMAB (ABCIXIMAB) [Suspect]
     Indication: ACUTE MYOCARDIAL INFARCTION
     Dosage: 8.4 MG; X1; IV, 35.7 MG; X1; IV
     Route: 042
     Dates: start: 20060417, end: 20060417
  4. PLACEBO (PLACEBO) [Suspect]
     Indication: ACUTE MYOCARDIAL INFARCTION
     Dosage: 0.25 MG/KG; X1; IV
     Route: 042
     Dates: start: 20060417, end: 20060417
  5. ASPIRIN [Concomitant]
  6. NIFEDIPINE [Concomitant]
  7. CLOPIDOGREL [Concomitant]
  8. METROPROLOL [Concomitant]
  9. SIMVASTATIN [Concomitant]

REACTIONS (5)
  - CARDIAC DEATH [None]
  - CORONARY ARTERY DISEASE [None]
  - CORONARY ARTERY STENOSIS [None]
  - HAEMODYNAMIC INSTABILITY [None]
  - VENTRICULAR FIBRILLATION [None]
